FAERS Safety Report 4459661-3 (Version None)
Quarter: 2004Q3

REPORT INFORMATION
  Report Type: 
  Country: None (occurrence: None)
  Receive Date: 20040913
  Receipt Date: 20040518
  Transmission Date: 20050211
  Serious: Yes (Hospitalization)
  Sender: FDA-Public Use
  Company Number: TAP2004Q00622

PATIENT
  Age: 15 Year
  Weight: 78.4723 kg

DRUGS (2)
  1. NAPRAPAC 500 (COPACKAGED) [Suspect]
     Indication: JUVENILE ARTHRITIS
     Dosage: 1 IN 1 WK
     Dates: start: 20040505, end: 20040501
  2. ADVIL [Suspect]
     Indication: JUVENILE ARTHRITIS
     Dosage: PER ORAL
     Route: 048
     Dates: start: 20040101, end: 20040501

REACTIONS (2)
  - RECTAL HAEMORRHAGE [None]
  - WEIGHT DECREASED [None]
